FAERS Safety Report 8097923-1 (Version None)
Quarter: 2012Q1

REPORT INFORMATION
  Report Type: 
  Country: None (occurrence: None)
  Receive Date: 20120128
  Receipt Date: 20110720
  Transmission Date: 20120608
  Serious: No
  Sender: FDA-Public Use
  Company Number: US-ABBOTT-11P-163-0840785-00

PATIENT
  Age: 39 Year
  Sex: Male

DRUGS (8)
  1. LIALDA [Concomitant]
     Indication: CROHN'S DISEASE
  2. ZYRTEC [Concomitant]
     Indication: SEASONAL ALLERGY
     Dosage: EVERY OTHER DAY
  3. MULTIVITAMIN [Concomitant]
     Indication: VITAMIN SUPPLEMENTATION
     Dosage: DAILY
  4. PREDNISONE TAB [Concomitant]
     Indication: CROHN'S DISEASE
     Dosage: DAILY
  5. FLORASTOR [Concomitant]
     Indication: PROBIOTIC THERAPY
     Dosage: DAILY PROBIOTIC
  6. LUTEIN [Concomitant]
     Indication: PHYTOTHERAPY
     Dosage: DAILY
  7. HUMIRA [Suspect]
     Indication: CROHN'S DISEASE
     Dates: start: 20110714
  8. FISH OIL [Concomitant]
     Indication: MEDICAL DIET
     Dosage: DAILY

REACTIONS (1)
  - BLOOD URINE PRESENT [None]
